FAERS Safety Report 4494926-0 (Version None)
Quarter: 2004Q4

REPORT INFORMATION
  Report Type: 
  Country: None (occurrence: None)
  Receive Date: 20041104
  Receipt Date: 20041104
  Transmission Date: 20050328
  Serious: Yes (Disabling, Other)
  Sender: FDA-Public Use
  Company Number: None

PATIENT
  Age: 70 Year
  Sex: Female
  Weight: 69.4003 kg

DRUGS (2)
  1. LOVASTATIN [Suspect]
     Indication: BLOOD CHOLESTEROL INCREASED
     Dosage: 10 TO 20 MG DAILY ORAL
     Route: 048
     Dates: start: 20000101, end: 20021001
  2. LOVASTATIN [Suspect]
     Indication: LOW DENSITY LIPOPROTEIN INCREASED
     Dosage: 10 TO 20 MG DAILY ORAL
     Route: 048
     Dates: start: 20000101, end: 20021001

REACTIONS (5)
  - BALANCE DISORDER [None]
  - COORDINATION ABNORMAL [None]
  - LOW DENSITY LIPOPROTEIN INCREASED [None]
  - MUSCLE CRAMP [None]
  - NEUROPATHY PERIPHERAL [None]
